FAERS Safety Report 20490439 (Version 1)
Quarter: 2022Q1

REPORT INFORMATION
  Report Type: Spontaneous
  Country: CA (occurrence: None)
  Receive Date: 20220218
  Receipt Date: 20220218
  Transmission Date: 20220423
  Serious: Yes (Other)
  Sender: FDA-Public Use
  Company Number: None

PATIENT
  Age: 24 Year
  Sex: Female
  Weight: 51.75 kg

DRUGS (1)
  1. NYSTATIN [Suspect]
     Active Substance: NYSTATIN
     Indication: Oral candidiasis
     Dosage: OTHER STRENGTH : U/ML;?OTHER QUANTITY : 1 TEASPOON(S);?FREQUENCY : 4 TIMES A DAY;?
     Route: 048
     Dates: start: 20220211, end: 20220216

REACTIONS (9)
  - Anger [None]
  - Thinking abnormal [None]
  - Agitation [None]
  - Suicidal behaviour [None]
  - Emotional disorder [None]
  - Hand fracture [None]
  - Haematoma [None]
  - Musculoskeletal foreign body [None]
  - Therapy cessation [None]

NARRATIVE: CASE EVENT DATE: 20220217
